FAERS Safety Report 5371612-6 (Version None)
Quarter: 2007Q2

REPORT INFORMATION
  Report Type: 
  Country: None (occurrence: None)
  Receive Date: 20070615
  Receipt Date: 20061205
  Transmission Date: 20071010
  Serious: Yes (Other)
  Sender: FDA-Public Use
  Company Number: 200612191US

PATIENT
  Age: 54 Year
  Sex: Female

DRUGS (9)
  1. LANTUS [Suspect]
     Indication: DIABETES MELLITUS NON-INSULIN-DEPENDENT
     Dosage: 44 U BID
     Dates: start: 20051101
  2. OPTICLIK [Suspect]
  3. AMARYL [Concomitant]
  4. ATORVASTATIN CALCIUM (LIPITOR) [Concomitant]
  5. ALLOPURINOL [Concomitant]
  6. VALSARTAN (DIOVANE) [Concomitant]
  7. VERAPAMIL HYDROCHLORIDE, TRANDOLAPRIL (TARKA) [Concomitant]
  8. LORATADINE (CLARITINE) [Concomitant]
  9. OXYGEN [Concomitant]

REACTIONS (1)
  - HYPERGLYCAEMIA [None]
